FAERS Safety Report 4384119-X (Version None)
Quarter: 2004Q2

REPORT INFORMATION
  Report Type: 
  Country: None (occurrence: None)
  Receive Date: 20040618
  Receipt Date: 20040607
  Transmission Date: 20050107
  Serious: Yes (Death)
  Sender: FDA-Public Use
  Company Number: HQWYE392409JUN04

PATIENT
  Sex: Male

DRUGS (1)
  1. RAPAMUNE [Suspect]
     Dosage: 2 MG 1X PER 1 DAY
     Route: 048

REACTIONS (1)
  - KIDNEY TRANSPLANT REJECTION [None]
